FAERS Safety Report 7138842-4 (Version None)
Quarter: 2010Q4

REPORT INFORMATION
  Report Type: 
  Country: None (occurrence: None)
  Receive Date: 20101206
  Receipt Date: 20101128
  Transmission Date: 20110411
  Serious: Yes (Other)
  Sender: FDA-Public Use
  Company Number: IL-NAPPMUNDI-GBR-2010-0007398

PATIENT
  Age: 63 Year
  Sex: Female

DRUGS (8)
  1. BUTRANS 20MG TRANSDERMAL PATCH [Suspect]
     Indication: PRODUCT USED FOR UNKNOWN INDICATION
     Dosage: 20 MCG, Q1H
     Route: 062
     Dates: start: 20101110
  2. PERCOCET [Concomitant]
     Dosage: 1 X TWO TO THREE DAILY PRN
  3. METFORMIN [Concomitant]
     Dosage: 850 UNK, DAILY
     Route: 048
  4. ART                                /00761001/ [Concomitant]
     Dosage: 50 UNK, BID
     Route: 048
  5. LIPITOR [Concomitant]
     Dosage: 40 UNK, DAILY
     Route: 048
  6. AMLO                               /00972402/ [Concomitant]
     Dosage: 10 UNK, DAILY
     Route: 048
  7. MICROPIRIN [Concomitant]
     Dosage: 100 UNK, DAILY
     Route: 048
  8. ELTROXIN [Concomitant]
     Dosage: 100 UNK, DAILY
     Route: 048

REACTIONS (3)
  - ARTHRALGIA [None]
  - BACK PAIN [None]
  - NECK PAIN [None]
